FAERS Safety Report 13578825 (Version 1)
Quarter: 2017Q2

REPORT INFORMATION
  Report Type: Spontaneous
  Country: US (occurrence: US)
  Receive Date: 20170524
  Receipt Date: 20170524
  Transmission Date: 20170830
  Serious: No
  Sender: FDA-Public Use
  Company Number: US-JAZZ-2017-US-004569

PATIENT
  Sex: Female

DRUGS (8)
  1. NUVIGIL [Concomitant]
     Active Substance: ARMODAFINIL
  2. XYREM [Suspect]
     Active Substance: SODIUM OXYBATE
     Indication: NARCOLEPSY
     Dosage: 3G, BID
     Route: 048
     Dates: start: 201101, end: 2011
  3. XYREM [Suspect]
     Active Substance: SODIUM OXYBATE
     Indication: CATAPLEXY
     Dosage: DOSE ADJUSTMENT
     Route: 048
     Dates: start: 201109, end: 201305
  4. XYREM [Suspect]
     Active Substance: SODIUM OXYBATE
     Dosage: 4G, BID
     Route: 048
     Dates: start: 201305
  5. CYMBALTA [Concomitant]
     Active Substance: DULOXETINE HYDROCHLORIDE
  6. ARMOUR THYROID [Concomitant]
     Active Substance: THYROID, PORCINE
  7. VITAMIN D3 [Concomitant]
     Active Substance: CHOLECALCIFEROL
  8. IBUPROFEN. [Concomitant]
     Active Substance: IBUPROFEN

REACTIONS (1)
  - Fatigue [Unknown]
